FAERS Safety Report 19079455 (Version 1)
Quarter: 2021Q1

REPORT INFORMATION
  Report Type: Other
  Country: FR (occurrence: FR)
  Receive Date: 20210331
  Receipt Date: 20210331
  Transmission Date: 20210420
  Serious: Yes (Other)
  Sender: FDA-Public Use
  Company Number: FR-VALIDUS PHARMACEUTICALS LLC-FR-2021VAL000893

PATIENT

DRUGS (20)
  1. PRINCI B                           /00499701/ [Suspect]
     Active Substance: CYANOCOBALAMIN\PYRIDOXINE HYDROCHLORIDE\THIAMINE
     Indication: VITAMIN SUPPLEMENTATION
     Dosage: 2 DF, QD
     Route: 048
  2. UVEDOSE [Suspect]
     Active Substance: CHOLECALCIFEROL
     Indication: PRODUCT USED FOR UNKNOWN INDICATION
     Dosage: 1 DF, Q15D
     Route: 048
  3. CALCIDIA [Suspect]
     Active Substance: CALCIUM CARBONATE
     Indication: CHRONIC KIDNEY DISEASE
     Dosage: 1 DF, QD
     Route: 048
  4. DEXAMETHASONE. [Suspect]
     Active Substance: DEXAMETHASONE
     Indication: NEPHROPATHY
     Dosage: 160 MG, QCY
     Route: 042
     Dates: start: 20170626, end: 20170626
  5. DEXAMETHASONE. [Suspect]
     Active Substance: DEXAMETHASONE
     Dosage: 160 MG, QCY
     Route: 042
  6. ORACILLINE                         /00001805/ [Suspect]
     Active Substance: PENICILLIN V BENZATHINE
     Indication: PROPHYLAXIS
     Dosage: 2 MIU, QD
     Route: 048
  7. ENDOXAN                            /00021101/ [Suspect]
     Active Substance: CYCLOPHOSPHAMIDE
     Dosage: 1500 MG, QCY
     Route: 042
     Dates: start: 201712, end: 201712
  8. FUROSEMIDE. [Suspect]
     Active Substance: FUROSEMIDE
     Indication: HYPERTENSION
     Dosage: 40 MG, QD
     Route: 048
  9. ZOPICLONE [Suspect]
     Active Substance: ZOPICLONE
     Indication: PRODUCT USED FOR UNKNOWN INDICATION
     Dosage: 1.5 DF, QD
     Route: 048
  10. RANITIDINE HYDROCHLORIDE. [Suspect]
     Active Substance: RANITIDINE HYDROCHLORIDE
     Indication: PRODUCT USED FOR UNKNOWN INDICATION
     Dosage: 1 DF, QD
     Route: 048
  11. VENLAFAXINE HYDROCHLORIDE. [Suspect]
     Active Substance: VENLAFAXINE HYDROCHLORIDE
     Indication: PRODUCT USED FOR UNKNOWN INDICATION
     Dosage: 2 DF, QD
     Route: 048
  12. ZELITREX [Suspect]
     Active Substance: VALACYCLOVIR HYDROCHLORIDE
     Indication: PROPHYLAXIS
     Dosage: 1 DF, QOD
     Route: 048
  13. VELCADE [Suspect]
     Active Substance: BORTEZOMIB
     Indication: NEPHROPATHY
     Dosage: 8.8 MG, QCY
     Route: 042
     Dates: start: 20170626, end: 20170626
  14. ARANESP [Suspect]
     Active Substance: DARBEPOETIN ALFA
     Indication: CHRONIC KIDNEY DISEASE
     Dosage: 60 MG, Q15D
     Route: 065
  15. VELCADE [Suspect]
     Active Substance: BORTEZOMIB
     Dosage: 8.8 MG, QCY
     Route: 042
     Dates: start: 20171212, end: 20171212
  16. LOXEN L P [Suspect]
     Active Substance: NICARDIPINE HYDROCHLORIDE
     Indication: HYPERTENSION
     Dosage: 1 DF, QD
     Route: 048
  17. DEPAMIDE [Suspect]
     Active Substance: VALPROMIDE
     Indication: PRODUCT USED FOR UNKNOWN INDICATION
     Dosage: 1 DF, QD
     Route: 048
  18. MIRTAZAPINE. [Suspect]
     Active Substance: MIRTAZAPINE
     Indication: PRODUCT USED FOR UNKNOWN INDICATION
     Dosage: 1 DF, QD
     Route: 048
  19. ENDOXAN                            /00021101/ [Suspect]
     Active Substance: CYCLOPHOSPHAMIDE
     Indication: NEPHROPATHY
     Dosage: 1500 MG, QCY
     Route: 042
     Dates: start: 20170626, end: 20170626
  20. IMNOVID [Suspect]
     Active Substance: POMALIDOMIDE
     Indication: NEPHROPATHY
     Dosage: 84 MG,28 DAYS
     Route: 042
     Dates: start: 20171219, end: 20180424

REACTIONS (3)
  - Bronchiectasis [Not Recovered/Not Resolved]
  - Obstructive airways disorder [Not Recovered/Not Resolved]
  - Bronchiolitis [Not Recovered/Not Resolved]

NARRATIVE: CASE EVENT DATE: 20180129
